FAERS Safety Report 20889865 (Version 2)
Quarter: 2023Q4

REPORT INFORMATION
  Report Type: Spontaneous
  Country: IT (occurrence: IT)
  Receive Date: 20220530
  Receipt Date: 20231013
  Transmission Date: 20240109
  Serious: Yes (Death, Other)
  Sender: FDA-Public Use
  Company Number: IT-PFIZER INC-202200729988

PATIENT
  Age: 55 Year
  Sex: Female

DRUGS (3)
  1. PEMBROLIZUMAB [Suspect]
     Active Substance: PEMBROLIZUMAB
     Indication: Papillary renal cell carcinoma
     Dosage: 200 MG, EVERY 3 WEEKS
     Dates: start: 20210411
  2. INLYTA [Suspect]
     Active Substance: AXITINIB
     Indication: Papillary renal cell carcinoma
     Dosage: 6 MILLIGRAM, QD (3 MG, 2X/DAY)
  3. INLYTA [Suspect]
     Active Substance: AXITINIB
     Dosage: 10 MILLIGRAM, QD (5 MG, 2X/DAY)
     Dates: start: 20210411

REACTIONS (3)
  - Death [Fatal]
  - Neoplasm progression [Fatal]
  - Off label use [Fatal]
